FAERS Safety Report 20476524 (Version 2)
Quarter: 2022Q1

REPORT INFORMATION
  Report Type: Spontaneous
  Country: CA (occurrence: CA)
  Receive Date: 20220215
  Receipt Date: 20220316
  Transmission Date: 20220423
  Serious: Yes (Other)
  Sender: FDA-Public Use
  Company Number: CA-AMERICAN REGENT INC-2022000370

PATIENT

DRUGS (2)
  1. VENOFER [Suspect]
     Active Substance: IRON SUCROSE
     Indication: Product used for unknown indication
     Dosage: UNK, FIRST DOSE
     Route: 065
  2. VENOFER [Suspect]
     Active Substance: IRON SUCROSE
     Dosage: 300 MG IN 250 ML OVER 2 HOURS

REACTIONS (6)
  - Pain [Unknown]
  - Erythema [Unknown]
  - Limb discomfort [Unknown]
  - Peripheral swelling [Unknown]
  - Incorrect product administration duration [Unknown]
  - Product quality issue [Unknown]
